FAERS Safety Report 10249265 (Version 1)
Quarter: 2014Q2

REPORT INFORMATION
  Report Type: Spontaneous
  Country: US (occurrence: None)
  Receive Date: 20140618
  Receipt Date: 20140618
  Transmission Date: 20141212
  Serious: No
  Sender: FDA-Public Use
  Company Number: None

PATIENT
  Age: 49 Year
  Sex: Female

DRUGS (1)
  1. TYKERB [Suspect]
     Dosage: 4 TABLETS (1000MG), QD, ORAL
     Route: 048

REACTIONS (1)
  - Rash [None]
